FAERS Safety Report 9441907 (Version 2)
Quarter: 2014Q2

REPORT INFORMATION
  Report Type: Spontaneous
  Country: US (occurrence: US)
  Receive Date: 20130806
  Receipt Date: 20140402
  Transmission Date: 20141212
  Serious: No
  Sender: FDA-Public Use
  Company Number: US-PFIZER INC-2013225983

PATIENT
  Age: 49 Year
  Sex: Female
  Weight: 97.51 kg

DRUGS (6)
  1. AMLODIPINE BESILATE [Suspect]
     Indication: HYPERTENSION
     Dosage: 2.5 MG, 1X/DAY
     Route: 048
     Dates: start: 201311
  2. AMLODIPINE BESILATE [Suspect]
     Dosage: 10 MG, 1X/DAY
     Route: 048
  3. HYDROCHLOROTHIAZIDE [Concomitant]
     Dosage: UNK
  4. BYSTOLIC [Concomitant]
     Indication: HYPERTENSION
     Dosage: UNK
  5. SINGULAIR [Concomitant]
     Indication: ASTHMA
     Dosage: UNK
  6. SPIRONOLACTONE [Concomitant]
     Dosage: UNK

REACTIONS (2)
  - Blood pressure inadequately controlled [Unknown]
  - Blood calcium decreased [Unknown]
